FAERS Safety Report 22773008 (Version 2)
Quarter: 2023Q4

REPORT INFORMATION
  Report Type: Spontaneous
  Country: AT (occurrence: AT)
  Receive Date: 20230801
  Receipt Date: 20231026
  Transmission Date: 20240110
  Serious: Yes (Hospitalization, Other)
  Sender: FDA-Public Use
  Company Number: AT-002147023-NVSC2023AT166813

PATIENT
  Age: 60 Year
  Sex: Female

DRUGS (1)
  1. SCEMBLIX [Suspect]
     Active Substance: ASCIMINIB HYDROCHLORIDE
     Indication: Chronic myeloid leukaemia
     Dosage: UNK
     Route: 065

REACTIONS (6)
  - Nephrotic syndrome [Unknown]
  - Hypertension [Unknown]
  - Proteinuria [Unknown]
  - Drug intolerance [Unknown]
  - Hypersensitivity [Unknown]
  - Rash [Unknown]
